FAERS Safety Report 20332865 (Version 1)
Quarter: 2022Q1

REPORT INFORMATION
  Report Type: Spontaneous
  Country: PL (occurrence: PL)
  Receive Date: 20220113
  Receipt Date: 20220113
  Transmission Date: 20220423
  Serious: Yes (Death, Other)
  Sender: FDA-Public Use
  Company Number: PL-BoehringerIngelheim-2022-BI-106883

PATIENT
  Age: 75 Year
  Sex: Female

DRUGS (2)
  1. OFEV [Suspect]
     Active Substance: NINTEDANIB
     Indication: Idiopathic pulmonary fibrosis
     Dosage: STARTING DOSE OF OFEV, REDUCED DURING TREATMENT
     Dates: start: 20200803
  2. OFEV [Suspect]
     Active Substance: NINTEDANIB
     Dosage: DOSE AFTER REDUCTION

REACTIONS (3)
  - Respiratory failure [Fatal]
  - Weight decreased [Unknown]
  - Lung neoplasm [Unknown]

NARRATIVE: CASE EVENT DATE: 20211201
